FAERS Safety Report 11927022 (Version 1)
Quarter: 2016Q1

REPORT INFORMATION
  Report Type: Spontaneous
  Country: US (occurrence: None)
  Receive Date: 20160115
  Receipt Date: 20160115
  Transmission Date: 20160526
  Serious: Yes (Hospitalization)
  Sender: FDA-Public Use
  Company Number: None

PATIENT
  Age: 59 Year
  Sex: Female

DRUGS (6)
  1. IBRANCE [Suspect]
     Active Substance: PALBOCICLIB
     Indication: BREAST CANCER
     Dosage: 1 CAP
     Route: 048
     Dates: start: 20150916, end: 20151223
  2. ONDANSETRON [Concomitant]
     Active Substance: ONDANSETRON
  3. TEMAZEPAM. [Concomitant]
     Active Substance: TEMAZEPAM
  4. CEPHALEXIN. [Concomitant]
     Active Substance: CEPHALEXIN
  5. HYDROCO/APAP [Concomitant]
     Active Substance: ACETAMINOPHEN\HYDROCODONE
  6. SENNA LAXATIVE [Concomitant]
     Active Substance: SENNOSIDES

REACTIONS (2)
  - Dehydration [None]
  - Vomiting [None]

NARRATIVE: CASE EVENT DATE: 20151223
